FAERS Safety Report 4429874-5 (Version None)
Quarter: 2004Q3

REPORT INFORMATION
  Report Type: 
  Country: None (occurrence: None)
  Receive Date: 20040816
  Receipt Date: 20040802
  Transmission Date: 20050211
  Serious: Yes (Other)
  Sender: FDA-Public Use
  Company Number: 2004052766

PATIENT

DRUGS (3)
  1. NORVASC [Suspect]
     Indication: ILL-DEFINED DISORDER
     Dosage: ORAL
     Route: 048
  2. DOXAZOSIN MESYLATE [Suspect]
     Indication: ILL-DEFINED DISORDER
     Dosage: ORAL
     Route: 048
  3. CANDESARTAN CILEXETIL (CANDESARTAN CILEXETIL) [Concomitant]
     Indication: HYPERTENSION
     Dosage: ORAL
     Route: 048

REACTIONS (1)
  - DIPLOPIA [None]
